FAERS Safety Report 14303296 (Version 1)
Quarter: 2017Q4

REPORT INFORMATION
  Report Type: Spontaneous
  Country: US (occurrence: US)
  Receive Date: 20171219
  Receipt Date: 20171219
  Transmission Date: 20180321
  Serious: Yes (Hospitalization)
  Sender: FDA-Public Use
  Company Number: US-OTSUKA-19611771

PATIENT
  Age: 59 Year
  Sex: Female
  Weight: 54.42 kg

DRUGS (1)
  1. ABILIFY [Suspect]
     Active Substance: ARIPIPRAZOLE
     Indication: MOOD SWINGS
     Dosage: 22JL13-5MG.5AG13-10MG
     Route: 065
     Dates: start: 20130722

REACTIONS (2)
  - Off label use [Unknown]
  - Confusional state [Unknown]

NARRATIVE: CASE EVENT DATE: 20130806
